FAERS Safety Report 20086696 (Version 2)
Quarter: 2022Q2

REPORT INFORMATION
  Report Type: Report from Study
  Country: US (occurrence: US)
  Receive Date: 20211118
  Receipt Date: 20220526
  Transmission Date: 20220721
  Serious: Yes (Other)
  Sender: FDA-Public Use
  Company Number: US-VERTEX PHARMACEUTICALS-2021-017933

PATIENT
  Sex: Female

DRUGS (1)
  1. TRIKAFTA [Suspect]
     Active Substance: ELEXACAFTOR\IVACAFTOR\TEZACAFTOR
     Indication: Cystic fibrosis
     Dosage: UNK
     Route: 048
     Dates: start: 20200109, end: 2021

REACTIONS (6)
  - Epilepsy [Unknown]
  - Mental status changes [Unknown]
  - Fatigue [Unknown]
  - Mood altered [Unknown]
  - Feeling abnormal [Unknown]
  - Heavy menstrual bleeding [Unknown]
